FAERS Safety Report 24966738 (Version 4)
Quarter: 2025Q1

REPORT INFORMATION
  Report Type: Report from Study
  Country: IT (occurrence: IT)
  Receive Date: 20250213
  Receipt Date: 20250307
  Transmission Date: 20250409
  Serious: Yes (Other)
  Sender: NOVARTIS
  Company Number: IT-002147023-NVSC2024IT072211

PATIENT
  Age: 56 Year
  Sex: Male

DRUGS (7)
  1. MAYZENT [Suspect]
     Active Substance: SIPONIMOD
     Indication: Multiple sclerosis
     Route: 048
     Dates: start: 20230627
  2. ACETAMINOPHEN [Concomitant]
     Active Substance: ACETAMINOPHEN
     Indication: Sciatica
     Route: 048
     Dates: start: 2012
  3. OXYCONTIN [Concomitant]
     Active Substance: OXYCODONE HYDROCHLORIDE
     Indication: Sciatica
     Route: 048
     Dates: start: 2012
  4. Baclofene doc [Concomitant]
     Indication: Sciatica
     Route: 048
     Dates: start: 2018
  5. TAMSULOSIN HYDROCHLORIDE [Concomitant]
     Active Substance: TAMSULOSIN HYDROCHLORIDE
     Indication: Urinary retention
     Route: 048
     Dates: start: 2011
  6. ETORICOXIB [Concomitant]
     Active Substance: ETORICOXIB
     Indication: Sciatica
     Route: 048
     Dates: start: 202206
  7. CIPROFLOXACIN [Concomitant]
     Active Substance: CIPROFLOXACIN
     Indication: Product used for unknown indication
     Dosage: 500 MG, BID
     Route: 048
     Dates: start: 20240930, end: 20241013

REACTIONS (5)
  - Pyelonephritis [Recovered/Resolved]
  - Dysuria [Unknown]
  - Pyrexia [Unknown]
  - Back pain [Unknown]
  - Lymphocyte count decreased [Recovered/Resolved]

NARRATIVE: CASE EVENT DATE: 20240123
